FAERS Safety Report 15459302 (Version 4)
Quarter: 2019Q2

REPORT INFORMATION
  Report Type: Spontaneous
  Country: JP (occurrence: JP)
  Receive Date: 20181003
  Receipt Date: 20190417
  Transmission Date: 20190711
  Serious: Yes (Hospitalization, Other)
  Sender: FDA-Public Use
  Company Number: JP-ELI_LILLY_AND_COMPANY-JP201809010859

PATIENT
  Sex: Female
  Weight: 36 kg

DRUGS (5)
  1. 5 FU [Concomitant]
     Active Substance: FLUOROURACIL
     Dosage: 2500 MG, OTHER
     Route: 041
     Dates: start: 20180904, end: 20181004
  2. IRINOTECAN [Concomitant]
     Active Substance: IRINOTECAN
     Indication: COLON CANCER STAGE IV
     Dosage: 160 MG, OTHER
     Route: 041
     Dates: start: 20180904, end: 20181004
  3. LEVOFOLINATE CALCIUM [Concomitant]
     Active Substance: LEVOLEUCOVORIN CALCIUM
     Indication: COLON CANCER STAGE IV
     Dosage: UNK
     Route: 041
  4. CYRAMZA [Suspect]
     Active Substance: RAMUCIRUMAB
     Indication: COLON CANCER STAGE IV
     Dosage: 300 MG, OTHER
     Route: 041
     Dates: start: 20180904, end: 20180920
  5. 5 FU [Concomitant]
     Active Substance: FLUOROURACIL
     Indication: COLON CANCER STAGE IV
     Dosage: 400 MG, OTHER
     Route: 040
     Dates: start: 20180904, end: 20181004

REACTIONS (4)
  - Proteinuria [Recovered/Resolved]
  - Malignant neoplasm progression [Unknown]
  - Malaise [Recovered/Resolved]
  - Oedema peripheral [Recovering/Resolving]

NARRATIVE: CASE EVENT DATE: 201809
